FAERS Safety Report 4601472-X (Version None)
Quarter: 2005Q1

REPORT INFORMATION
  Report Type: 
  Country: None (occurrence: None)
  Receive Date: 20050308
  Receipt Date: 20040927
  Transmission Date: 20050727
  Serious: Yes (Death, Hospitalization)
  Sender: FDA-Public Use
  Company Number: US-ROCHE-381484

PATIENT
  Age: 61 Year
  Sex: Male
  Weight: 52.6 kg

DRUGS (15)
  1. PEG-INTERFERON ALFA 2A (RO 25-8310) [Suspect]
     Route: 058
     Dates: start: 20040803, end: 20041116
  2. RIBAVIRIN [Suspect]
     Route: 048
     Dates: start: 20040803, end: 20041026
  3. NOVOLIN 70/30 [Suspect]
     Indication: DRUG USE FOR UNKNOWN INDICATION
     Dosage: 34 UNITS TAKEN A.M. AND 20 UNITS P.M. START DATE ALSO REPORTED AS 25 SEP 2004.
     Route: 065
     Dates: start: 20020615
  4. NOVOLIN 70/30 [Suspect]
     Route: 065
     Dates: start: 20040925
  5. NOVOLIN R [Suspect]
     Indication: DRUG USE FOR UNKNOWN INDICATION
     Dosage: SLIDING SCALE DOSE REPORTED. START DATE ALSO REPORTED AS 31 AUG 2004.
     Route: 065
     Dates: start: 20020615
  6. LISINOPRIL [Concomitant]
     Dates: start: 20020615
  7. MARIJUANA [Concomitant]
     Dates: start: 19890615
  8. AMITRIPTYLINE HCL [Concomitant]
     Route: 048
     Dates: start: 20040716
  9. GLUCERNA [Concomitant]
     Dosage: 2 CANS TAKEN DAILY. FORMULATION: LIQUID.
     Dates: start: 20040801
  10. EFFEXOR [Concomitant]
     Dates: start: 20040817
  11. COMPAZINE [Concomitant]
     Route: 048
     Dates: start: 20040831
  12. ASPIRIN [Concomitant]
     Dosage: THE PATIENT STOPPED TAKING THIS MEDICATION, ONE WEEK AGO.
     Dates: end: 20041004
  13. M.V.I. [Concomitant]
     Dates: start: 19790615
  14. FLORINEF [Concomitant]
     Dates: start: 20040921
  15. ASPIRIN [Concomitant]
     Dates: start: 20020615

REACTIONS (51)
  - ABDOMINAL PAIN [None]
  - ABSCESS LIMB [None]
  - ALANINE AMINOTRANSFERASE INCREASED [None]
  - ANAEMIA [None]
  - AORTIC ATHEROSCLEROSIS [None]
  - ARTHRALGIA [None]
  - ASCITES [None]
  - ASPARTATE AMINOTRANSFERASE INCREASED [None]
  - ASTHENIA [None]
  - ATELECTASIS [None]
  - BLOOD ALKALINE PHOSPHATASE INCREASED [None]
  - BLOOD CALCIUM DECREASED [None]
  - BLOOD PRESSURE DIASTOLIC DECREASED [None]
  - BLOOD SODIUM DECREASED [None]
  - CEREBRAL HYGROMA [None]
  - CHOLELITHIASIS [None]
  - CLAVICLE FRACTURE [None]
  - DEHYDRATION [None]
  - DIABETIC COMPLICATION [None]
  - DIZZINESS [None]
  - FALL [None]
  - FINGER AMPUTATION [None]
  - GENERAL PHYSICAL HEALTH DETERIORATION [None]
  - HAEMATOCHEZIA [None]
  - HEADACHE [None]
  - HYPERALBUMINAEMIA [None]
  - HYPERGLYCAEMIA [None]
  - HYPOGLYCAEMIA [None]
  - MENTAL STATUS CHANGES [None]
  - MULTI-ORGAN FAILURE [None]
  - MYALGIA [None]
  - NAUSEA [None]
  - NEPHROLITHIASIS [None]
  - NEUTROPENIA [None]
  - OCCULT BLOOD POSITIVE [None]
  - OEDEMA [None]
  - ORTHOSTATIC HYPOTENSION [None]
  - OSTEOMYELITIS [None]
  - PANCREATIC ATROPHY [None]
  - PELVIC ABSCESS [None]
  - PLATELET COUNT DECREASED [None]
  - PLEURAL EFFUSION [None]
  - POSTOPERATIVE ABSCESS [None]
  - SALIVARY GLAND DISORDER [None]
  - STAPHYLOCOCCAL INFECTION [None]
  - STAPHYLOCOCCAL SEPSIS [None]
  - SYNCOPE [None]
  - URINARY TRACT INFECTION STAPHYLOCOCCAL [None]
  - VENTRICULAR HYPERTROPHY [None]
  - VISION BLURRED [None]
  - VOMITING [None]
